FAERS Safety Report 8485274-2 (Version None)
Quarter: 2012Q3

REPORT INFORMATION
  Report Type: 
  Country: None (occurrence: None)
  Receive Date: 20120703
  Receipt Date: 20120629
  Transmission Date: 20120928
  Serious: No
  Sender: FDA-Public Use
  Company Number: US-PFIZER INC-2012157036

PATIENT
  Sex: Male
  Weight: 83.447 kg

DRUGS (2)
  1. DILANTIN [Suspect]
     Indication: EPILEPSY
     Dosage: 600 MG, DAILY
  2. KEPPRA [Suspect]
     Indication: EPILEPSY
     Dosage: 1000 MG, 2X/DAY

REACTIONS (3)
  - SOMNOLENCE [None]
  - ACTIVITIES OF DAILY LIVING IMPAIRED [None]
  - SEDATION [None]
